FAERS Safety Report 9053560 (Version 1)
Quarter: 2013Q1

REPORT INFORMATION
  Report Type: Spontaneous
  Country: US (occurrence: None)
  Receive Date: 20130201
  Receipt Date: 20130201
  Transmission Date: 20140127
  Serious: Yes (Life-Threatening, Hospitalization)
  Sender: FDA-Public Use
  Company Number: None

PATIENT
  Age: 3 Day
  Sex: Male
  Weight: 3.18 kg

DRUGS (1)
  1. LATUDA 80MG [Suspect]
     Dosage: OVER 1 YEAR, THROUGHOUT P
     Route: 048

REACTIONS (4)
  - Tonic clonic movements [None]
  - Supraventricular tachycardia [None]
  - Apnoea neonatal [None]
  - Maternal drugs affecting foetus [None]
